FAERS Safety Report 12380612 (Version 1)
Quarter: 2016Q2

REPORT INFORMATION
  Report Type: Spontaneous
  Country: US (occurrence: None)
  Receive Date: 20160517
  Receipt Date: 20160517
  Transmission Date: 20160815
  Serious: Yes (Disabling)
  Sender: FDA-Public Use
  Company Number: None

PATIENT
  Age: 59 Year
  Sex: Male
  Weight: 63.5 kg

DRUGS (4)
  1. METHYLATED FOLATE [Concomitant]
  2. CIPROFLOXACIN, 500 MG [Suspect]
     Active Substance: CIPROFLOXACIN
     Indication: EPIDIDYMITIS
     Route: 048
     Dates: start: 20150329, end: 20150407
  3. VITAMIN B12 [Concomitant]
     Active Substance: CYANOCOBALAMIN
  4. B6 [Concomitant]
     Active Substance: PYRIDOXINE HYDROCHLORIDE

REACTIONS (15)
  - Pollakiuria [None]
  - Retinal detachment [None]
  - Photopsia [None]
  - Tinnitus [None]
  - Hypotension [None]
  - Anxiety [None]
  - Vitreous floaters [None]
  - Bradycardia [None]
  - Neuropathy peripheral [None]
  - Feeling abnormal [None]
  - Micturition urgency [None]
  - Myoclonus [None]
  - Fatigue [None]
  - Hypertension [None]
  - Insomnia [None]

NARRATIVE: CASE EVENT DATE: 20150401
